FAERS Safety Report 5814358-X (Version None)
Quarter: 2008Q3

REPORT INFORMATION
  Report Type: 
  Country: None (occurrence: None)
  Receive Date: 20080717
  Receipt Date: 20080707
  Transmission Date: 20090109
  Serious: Yes (Other)
  Sender: FDA-Public Use
  Company Number: DE-SANOFI-SYNTHELABO-F01200801159

PATIENT
  Sex: Male

DRUGS (2)
  1. TAMSULOSIN HCL [Concomitant]
     Indication: BENIGN PROSTATIC HYPERPLASIA
     Dosage: UNK
     Dates: start: 20070301
  2. ELIGARD [Suspect]
     Indication: PROSTATE CANCER
     Dosage: ONCE PER 6 MONTHS 45 MG
     Route: 058
     Dates: start: 20070531

REACTIONS (2)
  - METASTASES TO BONE [None]
  - PROSTATE CANCER [None]
